FAERS Safety Report 10199377 (Version 4)
Quarter: 2014Q2

REPORT INFORMATION
  Report Type: Spontaneous
  Country: US (occurrence: US)
  Receive Date: 20140527
  Receipt Date: 20140619
  Transmission Date: 20141212
  Serious: Yes (Hospitalization, Other)
  Sender: FDA-Public Use
  Company Number: US-BAXTER-2014BAX024479

PATIENT
  Sex: Male

DRUGS (5)
  1. DIANEAL LOW CALCIUM [Suspect]
     Indication: PERITONEAL DIALYSIS
     Route: 033
     Dates: start: 20140325
  2. DIANEAL LOW CALCIUM [Suspect]
     Route: 033
     Dates: start: 20140521
  3. DIANEAL LOW CALCIUM [Suspect]
     Indication: PERITONEAL DIALYSIS
     Route: 033
     Dates: start: 20140325
  4. DIANEAL LOW CALCIUM [Suspect]
     Route: 033
     Dates: start: 20140521
  5. COUMADIN [Suspect]
     Indication: PRODUCT USED FOR UNKNOWN INDICATION

REACTIONS (12)
  - Haemorrhage [Unknown]
  - Anaemia [Recovered/Resolved]
  - Pleural effusion [Unknown]
  - Endocarditis [Recovered/Resolved]
  - Peritoneal dialysis complication [Unknown]
  - Blood albumin decreased [Recovered/Resolved]
  - Chest pain [Recovered/Resolved]
  - Fluid overload [Recovered/Resolved]
  - Catheter site haemorrhage [Unknown]
  - Blood glucose decreased [Recovered/Resolved]
  - Dizziness [Recovered/Resolved]
  - Muscle spasms [Recovered/Resolved]
